FAERS Safety Report 11950517 (Version 1)
Quarter: 2016Q1

REPORT INFORMATION
  Report Type: Report from Study
  Country: US (occurrence: US)
  Receive Date: 20160125
  Receipt Date: 20160125
  Transmission Date: 20160526
  Serious: No
  Sender: FDA-Public Use
  Company Number: US-ABBVIE-15K-163-1331849-00

PATIENT
  Age: 30 Year
  Sex: Male
  Weight: 86.71 kg

DRUGS (4)
  1. HUMIRA [Suspect]
     Active Substance: ADALIMUMAB
     Route: 065
     Dates: start: 201112, end: 201401
  2. HUMIRA [Suspect]
     Active Substance: ADALIMUMAB
     Indication: CROHN^S DISEASE
     Dosage: LOADING DOSE
     Route: 065
     Dates: start: 201111, end: 201111
  3. HUMIRA [Suspect]
     Active Substance: ADALIMUMAB
     Route: 065
     Dates: start: 201111, end: 201111
  4. METHOTREXATE [Concomitant]
     Active Substance: METHOTREXATE
     Indication: PRODUCT USED FOR UNKNOWN INDICATION
     Dates: end: 201201

REACTIONS (4)
  - Psoriasis [Unknown]
  - Rash erythematous [Recovering/Resolving]
  - Exfoliative rash [Recovering/Resolving]
  - Rash [Unknown]

NARRATIVE: CASE EVENT DATE: 201304
